FAERS Safety Report 8740457 (Version 4)
Quarter: 2014Q2

REPORT INFORMATION
  Report Type: Spontaneous
  Country: US (occurrence: US)
  Receive Date: 20120823
  Receipt Date: 20140417
  Transmission Date: 20141212
  Serious: Yes (Other)
  Sender: FDA-Public Use
  Company Number: US-009507513-1208USA005204

PATIENT
  Sex: Male

DRUGS (1)
  1. PROPECIA [Suspect]
     Indication: ALOPECIA
     Dosage: 10 MG, UNK
     Route: 048
     Dates: start: 1997, end: 2002

REACTIONS (11)
  - Cognitive disorder [Not Recovered/Not Resolved]
  - Sexual dysfunction [Not Recovered/Not Resolved]
  - Erectile dysfunction [Unknown]
  - Anxiety [Unknown]
  - Blood urine present [Unknown]
  - Asthma [Unknown]
  - Hypercholesterolaemia [Unknown]
  - Dyspnoea [Unknown]
  - Hypogonadism male [Unknown]
  - Semen volume decreased [Unknown]
  - Hypersensitivity [Unknown]
